FAERS Safety Report 14117082 (Version 1)
Quarter: 2017Q4

REPORT INFORMATION
  Report Type: Spontaneous
  Country: FR (occurrence: FR)
  Receive Date: 20171023
  Receipt Date: 20171023
  Transmission Date: 20180321
  Serious: Yes (Other)
  Sender: FDA-Public Use
  Company Number: FR-BAYER-2017-195786

PATIENT
  Age: 34 Year
  Sex: Female

DRUGS (1)
  1. MIRENA [Suspect]
     Active Substance: LEVONORGESTREL
     Indication: CONTRACEPTION
     Dosage: 20 MCG/24HR, CONT
     Route: 015
     Dates: start: 20130206, end: 20170927

REACTIONS (10)
  - Fatigue [Unknown]
  - Back pain [Unknown]
  - Thyroid mass [Unknown]
  - Abdominal distension [Unknown]
  - Irritability [Unknown]
  - Weight increased [Unknown]
  - Breast pain [Unknown]
  - Mood swings [Unknown]
  - Acne [Unknown]
  - Vertigo [Unknown]

NARRATIVE: CASE EVENT DATE: 2013
